FAERS Safety Report 10839655 (Version 3)
Quarter: 2015Q1

REPORT INFORMATION
  Report Type: Spontaneous
  Country: DK (occurrence: None)
  Receive Date: 20150218
  Receipt Date: 20150310
  Transmission Date: 20150721
  Serious: Yes (Hospitalization)
  Sender: FDA-Public Use
  Company Number: 2015AP006546

PATIENT
  Age: 11 Year
  Sex: Female
  Weight: 29 kg

DRUGS (1)
  1. FERRIPROX [Suspect]
     Active Substance: DEFERIPRONE
     Indication: CONGENITAL APLASTIC ANAEMIA
     Route: 048
     Dates: start: 20140618, end: 20150127

REACTIONS (3)
  - Agranulocytosis [None]
  - Neutropenia [None]
  - C-reactive protein increased [None]

NARRATIVE: CASE EVENT DATE: 20150127
